FAERS Safety Report 6539671-2 (Version None)
Quarter: 2010Q1

REPORT INFORMATION
  Report Type: 
  Country: None (occurrence: None)
  Receive Date: 20100115
  Receipt Date: 20100112
  Transmission Date: 20100710
  Serious: Yes (Other)
  Sender: FDA-Public Use
  Company Number: DK-SANOFI-AVENTIS-200917187GDDC

PATIENT
  Age: 53 Year
  Sex: Female
  Weight: 87.4 kg

DRUGS (1)
  1. DOCETAXEL [Suspect]
     Dosage: DOSE:40 MILLIGRAM(S)/MILLILITRE
     Route: 042

REACTIONS (1)
  - TYPE 2 DIABETES MELLITUS [None]
